FAERS Safety Report 21486874 (Version 1)
Quarter: 2022Q4

REPORT INFORMATION
  Report Type: Spontaneous
  Country: US (occurrence: None)
  Receive Date: 20221020
  Receipt Date: 20221020
  Transmission Date: 20230113
  Serious: Yes (Hospitalization)
  Sender: FDA-Public Use
  Company Number: None

PATIENT
  Age: 38 Year
  Sex: Female

DRUGS (1)
  1. BEBTELOVIMAB [Suspect]
     Active Substance: BEBTELOVIMAB
     Indication: COVID-19
     Dosage: FREQUENCY : ONCE;?
     Route: 042
     Dates: start: 20220909, end: 20220909

REACTIONS (9)
  - Exposure during pregnancy [None]
  - Maternal drugs affecting foetus [None]
  - Maternal condition affecting foetus [None]
  - Cough [None]
  - Oropharyngeal pain [None]
  - Hypophagia [None]
  - Gastrooesophageal reflux disease [None]
  - Inflammation [None]
  - Foetal hypokinesia [None]

NARRATIVE: CASE EVENT DATE: 20220929
